FAERS Safety Report 7917438-8 (Version None)
Quarter: 2011Q4

REPORT INFORMATION
  Report Type: 
  Country: None (occurrence: None)
  Receive Date: 20111114
  Receipt Date: 20111102
  Transmission Date: 20120403
  Serious: Yes (Other)
  Sender: FDA-Public Use
  Company Number: GB-1188856

PATIENT
  Age: 44 Year
  Sex: Female

DRUGS (1)
  1. LODOXAL 0.1 % OPHTHALMIC SOLUTION (LODOXAMIDE) [Suspect]
     Indication: GIANT PAPILLARY CONJUNCTIVITIS
     Dosage: (OPHTHALMIC)
     Route: 047
     Dates: start: 20111011, end: 20111025

REACTIONS (3)
  - OESOPHAGEAL PAIN [None]
  - THROAT IRRITATION [None]
  - CYSTITIS [None]
